FAERS Safety Report 15413039 (Version 1)
Quarter: 2018Q3

REPORT INFORMATION
  Report Type: Spontaneous
  Country: JP (occurrence: JP)
  Receive Date: 20180921
  Receipt Date: 20180921
  Transmission Date: 20181010
  Serious: Yes (Other)
  Sender: FDA-Public Use
  Company Number: JP-TEVA-2018-JP-005262J

PATIENT
  Sex: Female

DRUGS (2)
  1. HALCION [Concomitant]
     Active Substance: TRIAZOLAM
     Route: 048
  2. CONSTAN 0.4MG.TABLETS [Suspect]
     Active Substance: ALPRAZOLAM
     Indication: PRODUCT USED FOR UNKNOWN INDICATION
     Route: 048

REACTIONS (2)
  - Insomnia [Unknown]
  - Arrhythmia [Unknown]
